FAERS Safety Report 9977419 (Version 2)
Quarter: 2014Q1

REPORT INFORMATION
  Report Type: Report from Study
  Country: US (occurrence: US)
  Receive Date: 20140306
  Receipt Date: 20140306
  Transmission Date: 20141002
  Serious: No
  Sender: FDA-Public Use
  Company Number: US-ABBVIE-13P-163-1137506-00

PATIENT
  Age: 49 Year
  Sex: Female

DRUGS (16)
  1. HUMIRA [Suspect]
     Indication: CROHN^S DISEASE
     Dosage: LOADING DOSE
     Dates: start: 20130730, end: 20130730
  2. HUMIRA [Suspect]
     Dosage: LOADING DOSE
     Dates: start: 20130814, end: 20130814
  3. HUMIRA [Suspect]
  4. LIALDA [Suspect]
     Indication: CROHN^S DISEASE
     Dosage: 2 IN AM, 2 IN PM
     Dates: start: 201305
  5. LIALDA [Suspect]
     Dosage: 1 IN AM AND 1 IN PM
     Dates: start: 20130923
  6. LIALDA [Suspect]
  7. BENICAR [Concomitant]
     Indication: HYPERTENSION
  8. OMEPRAZOLE [Concomitant]
     Indication: DYSPEPSIA
  9. OMEPRAZOLE [Concomitant]
     Indication: GASTROOESOPHAGEAL REFLUX DISEASE
  10. FLUOXETINE [Concomitant]
     Indication: ANXIETY
  11. VITAMIN B [Concomitant]
     Indication: VITAMIN SUPPLEMENTATION
     Route: 050
  12. LATANOPROST [Concomitant]
     Indication: OPHTHALMOLOGIC TREATMENT
     Dosage: EACH EYE BEFORE BED
  13. FISH OIL [Concomitant]
     Indication: NUTRITIONAL SUPPLEMENTATION
  14. GLUCOSAMINE [Concomitant]
     Indication: NUTRITIONAL SUPPLEMENTATION
  15. MULTIVITAMIN [Concomitant]
     Indication: VITAMIN SUPPLEMENTATION
  16. VITAMIN D [Concomitant]
     Indication: VITAMIN D DECREASED
     Dates: start: 20130904

REACTIONS (10)
  - Joint stiffness [Recovering/Resolving]
  - Myalgia [Not Recovered/Not Resolved]
  - Joint stiffness [Not Recovered/Not Resolved]
  - Joint stiffness [Not Recovered/Not Resolved]
  - Pain in extremity [Not Recovered/Not Resolved]
  - Dysstasia [Not Recovered/Not Resolved]
  - Alopecia [Not Recovered/Not Resolved]
  - Arthralgia [Not Recovered/Not Resolved]
  - Movement disorder [Not Recovered/Not Resolved]
  - Hair texture abnormal [Unknown]
